FAERS Safety Report 19682550 (Version 7)
Quarter: 2023Q2

REPORT INFORMATION
  Report Type: Report from Study
  Country: ES (occurrence: ES)
  Receive Date: 20210810
  Receipt Date: 20230626
  Transmission Date: 20230721
  Serious: Yes (Death, Hospitalization, Other)
  Sender: FDA-Public Use
  Company Number: ES-TAKEDA-ES201504799

PATIENT
  Age: 8 Year
  Sex: Male

DRUGS (52)
  1. IDURSULFASE [Suspect]
     Active Substance: IDURSULFASE
     Indication: Mucopolysaccharidosis II
     Dosage: 0.51 MILLIGRAM/KILOGRAM, 1/WEEK
     Route: 041
     Dates: start: 20090402
  2. IDURSULFASE [Suspect]
     Active Substance: IDURSULFASE
     Dosage: 0.5 MILLIGRAM/KILOGRAM, 1/WEEK
     Route: 042
     Dates: start: 20130606
  3. RISPERIDONE [Concomitant]
     Active Substance: RISPERIDONE
     Indication: Antipsychotic therapy
     Dosage: UNK
     Dates: end: 2013
  4. RISPERIDONE [Concomitant]
     Active Substance: RISPERIDONE
     Dosage: UNK
     Route: 048
     Dates: start: 2016
  5. DESLORATADINE [Concomitant]
     Active Substance: DESLORATADINE
     Indication: Respiratory disorder
     Dosage: UNK
     Route: 048
     Dates: start: 2010
  6. FLUTICASONE [Concomitant]
     Active Substance: FLUTICASONE
     Indication: Respiratory disorder
     Dosage: UNK
     Route: 055
     Dates: start: 2010
  7. Mometasona [Concomitant]
     Indication: Respiratory disorder
     Dosage: UNK
     Route: 045
     Dates: start: 2010
  8. ALBUTEROL [Concomitant]
     Active Substance: ALBUTEROL
     Indication: Respiratory distress
     Dosage: UNK
     Route: 055
     Dates: start: 2010
  9. ALBUTEROL [Concomitant]
     Active Substance: ALBUTEROL
     Indication: Respiratory disorder
     Dosage: UNK
     Route: 045
     Dates: start: 20140204, end: 20140221
  10. ALBUTEROL [Concomitant]
     Active Substance: ALBUTEROL
     Indication: Respiratory tract infection
     Dosage: UNK
     Dates: start: 20180924
  11. CAPTOPRIL [Concomitant]
     Active Substance: CAPTOPRIL
     Indication: Hypertension
     Dosage: UNK
     Dates: start: 201202
  12. CLOBAZAM [Concomitant]
     Active Substance: CLOBAZAM
     Indication: Aggression
     Dosage: UNK
     Route: 048
     Dates: start: 20120716
  13. CLOBAZAM [Concomitant]
     Active Substance: CLOBAZAM
     Indication: Epilepsy
  14. MELAMIL [Concomitant]
     Indication: Insomnia
     Dosage: UNK
     Route: 048
     Dates: start: 20130919
  15. FLUNARIZINE [Concomitant]
     Active Substance: FLUNARIZINE
     Indication: Migraine prophylaxis
     Dosage: UNK
     Route: 048
     Dates: start: 20131107, end: 20141107
  16. CALCIUM CARBONATE\CHOLECALCIFEROL [Concomitant]
     Active Substance: CALCIUM CARBONATE\CHOLECALCIFEROL
     Indication: Blood calcium
     Dosage: UNK
     Route: 048
     Dates: start: 2015
  17. CALCIUM CARBONATE\CHOLECALCIFEROL [Concomitant]
     Active Substance: CALCIUM CARBONATE\CHOLECALCIFEROL
     Indication: Vitamin D deficiency
  18. VALPROATE SODIUM [Concomitant]
     Active Substance: VALPROATE SODIUM
     Indication: Seizure
     Dosage: UNK
     Route: 048
     Dates: start: 20150608
  19. VALPROATE SODIUM [Concomitant]
     Active Substance: VALPROATE SODIUM
     Indication: Antipsychotic therapy
  20. KEPPRA [Concomitant]
     Active Substance: LEVETIRACETAM
     Indication: Epilepsy
     Dosage: UNK
     Route: 048
     Dates: start: 20150825, end: 20200504
  21. IPRATROPIUM BROMIDE [Concomitant]
     Active Substance: IPRATROPIUM BROMIDE\IPRATROPIUM BROMIDE ANHYDROUS
     Indication: Respiratory distress
     Dosage: UNK
     Route: 045
     Dates: start: 20160305, end: 20160331
  22. BUDESONIDE [Concomitant]
     Active Substance: BUDESONIDE
     Indication: Respiratory distress
     Dosage: UNK
     Route: 045
     Dates: start: 20160305, end: 20160331
  23. BUDESONIDE [Concomitant]
     Active Substance: BUDESONIDE
     Indication: Respiratory tract infection
     Dosage: UNK
     Dates: start: 20180924
  24. PREDNISOLONE [Concomitant]
     Active Substance: PREDNISOLONE
     Indication: Inflammatory pain
     Dosage: UNK
     Route: 048
     Dates: start: 20160305, end: 20160331
  25. PREDNISOLONE [Concomitant]
     Active Substance: PREDNISOLONE
     Indication: Inflammation
     Dosage: UNK
     Dates: start: 20181224, end: 20181229
  26. PREDNISOLONE [Concomitant]
     Active Substance: PREDNISOLONE
     Dosage: UNK
     Route: 048
     Dates: start: 20190920, end: 20190920
  27. OSELTAMIVIR [Concomitant]
     Active Substance: OSELTAMIVIR
     Indication: Influenza
     Dosage: UNK
     Route: 048
     Dates: start: 20160305, end: 20160331
  28. POLYETHYLENE GLYCOL [Concomitant]
     Active Substance: POLYETHYLENE GLYCOL
     Dosage: UNK
     Route: 048
     Dates: start: 20160305, end: 20160331
  29. AMOXICILLIN\CLAVULANATE POTASSIUM [Concomitant]
     Active Substance: AMOXICILLIN\CLAVULANATE POTASSIUM
     Indication: Ear infection
     Dosage: UNK
     Route: 048
     Dates: start: 20160323, end: 20160331
  30. AMOXICILLIN\CLAVULANATE POTASSIUM [Concomitant]
     Active Substance: AMOXICILLIN\CLAVULANATE POTASSIUM
     Indication: Respiratory tract infection
     Dosage: UNK
     Route: 048
     Dates: start: 20170303, end: 20170310
  31. AMOXICILLIN\CLAVULANATE POTASSIUM [Concomitant]
     Active Substance: AMOXICILLIN\CLAVULANATE POTASSIUM
     Indication: Face injury
     Dosage: UNK
     Route: 048
     Dates: start: 20171127, end: 20171205
  32. AMOXICILLIN\CLAVULANATE POTASSIUM [Concomitant]
     Active Substance: AMOXICILLIN\CLAVULANATE POTASSIUM
     Indication: Postoperative wound infection
     Dosage: UNK
     Route: 048
     Dates: start: 20180526, end: 20180602
  33. AMOXICILLIN\CLAVULANATE POTASSIUM [Concomitant]
     Active Substance: AMOXICILLIN\CLAVULANATE POTASSIUM
     Dosage: UNK
     Route: 048
     Dates: start: 20190920, end: 20190927
  34. MONTELUKAST [Concomitant]
     Active Substance: MONTELUKAST SODIUM
     Indication: Dyspnoea
     Dosage: UNK
     Route: 048
     Dates: start: 20160801
  35. HYDROCHLOROTHIAZIDE [Concomitant]
     Active Substance: HYDROCHLOROTHIAZIDE
     Indication: Hypertension
     Dosage: UNK
     Route: 048
     Dates: start: 20160801
  36. CALCIUM CARBONATE [Concomitant]
     Active Substance: CALCIUM CARBONATE
     Indication: Calcium deficiency
     Dosage: UNK
     Route: 048
     Dates: start: 20160801
  37. POTASSIUM [Concomitant]
     Active Substance: POTASSIUM
     Indication: Vitamin K deficiency
     Dosage: UNK
     Route: 048
     Dates: start: 20170706
  38. IBUPROFEN [Concomitant]
     Active Substance: IBUPROFEN
     Indication: Face injury
     Dosage: UNK
     Route: 048
     Dates: start: 20171127, end: 20171130
  39. IBUPROFEN [Concomitant]
     Active Substance: IBUPROFEN
     Indication: Postoperative wound infection
     Dosage: UNK
     Route: 048
     Dates: start: 20180326, end: 20180602
  40. Iruxol mono [Concomitant]
     Indication: Decubitus ulcer
     Dosage: UNK
     Route: 061
     Dates: start: 20171205, end: 20171219
  41. BETAMETHASONE DIPROPIONATE\GENTAMICIN SULFATE [Concomitant]
     Active Substance: BETAMETHASONE DIPROPIONATE\GENTAMICIN SULFATE
     Indication: Decubitus ulcer
     Dosage: UNK
     Route: 061
     Dates: start: 20171219, end: 20180123
  42. Blastoestimulina [Concomitant]
     Indication: Decubitus ulcer
     Dosage: UNK
     Route: 061
     Dates: start: 20180123, end: 20180205
  43. ACETAMINOPHEN [Concomitant]
     Active Substance: ACETAMINOPHEN
     Indication: Postoperative wound infection
     Dosage: UNK
     Route: 048
     Dates: start: 20180526, end: 20180602
  44. VANCOMYCIN [Concomitant]
     Active Substance: VANCOMYCIN
     Dosage: UNK
     Dates: start: 20190129, end: 20190211
  45. CLINDAMYCIN [Concomitant]
     Active Substance: CLINDAMYCIN
     Dosage: UNK
     Dates: start: 20190129, end: 20190205
  46. CLINDAMYCIN [Concomitant]
     Active Substance: CLINDAMYCIN
     Dosage: UNK
     Dates: start: 20190220
  47. CEFOTAXIME [Concomitant]
     Active Substance: CEFOTAXIME SODIUM
     Dosage: UNK
     Dates: start: 20190220
  48. AZITHROMYCIN [Concomitant]
     Active Substance: AZITHROMYCIN
     Indication: Condition aggravated
     Dosage: UNK
     Route: 048
     Dates: start: 20190610, end: 20190615
  49. AZITHROMYCIN [Concomitant]
     Active Substance: AZITHROMYCIN
     Indication: Respiratory tract infection
     Dosage: UNK
     Route: 048
     Dates: start: 20190930, end: 20191005
  50. ACETYLCYSTEINE [Concomitant]
     Active Substance: ACETYLCYSTEINE
     Indication: Secretion discharge
     Dosage: UNK
     Route: 048
     Dates: start: 20190930, end: 20191007
  51. PULMICORT TURBUHALER [Concomitant]
     Active Substance: BUDESONIDE
     Indication: Respiratory tract infection
     Dosage: UNK
     Route: 055
     Dates: start: 20191203
  52. LEVETIRACETAM [Concomitant]
     Active Substance: LEVETIRACETAM
     Dosage: UNK
     Route: 048
     Dates: start: 20200504

REACTIONS (4)
  - Neuropathy peripheral [Fatal]
  - Aggression [Not Recovered/Not Resolved]
  - Agitation [Not Recovered/Not Resolved]
  - Insomnia [Recovering/Resolving]

NARRATIVE: CASE EVENT DATE: 20150226
